FAERS Safety Report 17286132 (Version 1)
Quarter: 2020Q1

REPORT INFORMATION
  Report Type: Report from Study
  Country: ES (occurrence: ES)
  Receive Date: 20200118
  Receipt Date: 20200118
  Transmission Date: 20200409
  Serious: Yes (Death)
  Sender: FDA-Public Use
  Company Number: ES-ACCORD-169710

PATIENT
  Age: 37 Year
  Sex: Male

DRUGS (7)
  1. NORDAZEPAM [Suspect]
     Active Substance: NORDAZEPAM
  2. NORTRIPTYLINE [Suspect]
     Active Substance: NORTRIPTYLINE
  3. DIAZEPAM. [Suspect]
     Active Substance: DIAZEPAM
  4. AMITRIPTYLINE [Suspect]
     Active Substance: AMITRIPTYLINE
  5. COCAINE [Suspect]
     Active Substance: COCAINE
  6. MEDAZEPAM [Suspect]
     Active Substance: MEDAZEPAM
  7. LORMETAZEPAM [Suspect]
     Active Substance: LORMETAZEPAM

REACTIONS (2)
  - Blood ethanol [Fatal]
  - Toxicity to various agents [Fatal]
